FAERS Safety Report 7136737-3 (Version None)
Quarter: 2010Q4

REPORT INFORMATION
  Report Type: 
  Country: None (occurrence: None)
  Receive Date: 20101206
  Receipt Date: 20101123
  Transmission Date: 20110411
  Serious: Yes (Hospitalization, Other)
  Sender: FDA-Public Use
  Company Number: CN-PAR PHARMACEUTICAL, INC-2010SCPR002289

PATIENT
  Age: 31 Year
  Sex: Male

DRUGS (16)
  1. DEXAMETHASONE [Suspect]
     Indication: HYPERSENSITIVITY
     Dosage: 25 MG, UNKNOWN
     Route: 051
  2. DEXAMETHASONE [Suspect]
     Dosage: 5 MG, DAILY
     Route: 051
     Dates: start: 20080505
  3. DEXAMETHASONE [Suspect]
     Dosage: 10 MG, UNK
     Route: 065
     Dates: start: 20080515
  4. CEFTAZIDIME [Concomitant]
     Indication: PRODUCT USED FOR UNKNOWN INDICATION
     Dosage: UNK
     Route: 065
  5. ADENOSYL METHIONINE [Concomitant]
     Indication: PRODUCT USED FOR UNKNOWN INDICATION
     Dosage: UNK
     Route: 065
  6. GLUTATHIONE [Concomitant]
     Indication: PRODUCT USED FOR UNKNOWN INDICATION
     Dosage: UNK
     Route: 065
  7. DIAMMONIUM GLYCYRRHIZINATE [Concomitant]
     Indication: PRODUCT USED FOR UNKNOWN INDICATION
     Dosage: UNK
     Route: 065
  8. MEROPENEM [Concomitant]
     Indication: PRODUCT USED FOR UNKNOWN INDICATION
     Dosage: UNK
     Route: 065
  9. TINIDAZOLE [Concomitant]
     Indication: PRODUCT USED FOR UNKNOWN INDICATION
     Dosage: UNK
     Route: 065
  10. PIPERACILLIN [Concomitant]
     Indication: ABDOMINAL INFECTION
     Dosage: UNK
     Route: 065
  11. SULBACTAM [Concomitant]
     Indication: ABDOMINAL INFECTION
     Dosage: UNK
     Route: 065
  12. ALPROSTADIL [Concomitant]
     Indication: PRODUCT USED FOR UNKNOWN INDICATION
     Dosage: UNK
     Route: 065
  13. LAMIVUDINE [Concomitant]
     Indication: PRODUCT USED FOR UNKNOWN INDICATION
     Dosage: UNK
     Route: 065
  14. PLASMA [Concomitant]
     Indication: PRODUCT USED FOR UNKNOWN INDICATION
     Dosage: UNK
     Route: 051
  15. THYMOSIN ALPHA 1 [Concomitant]
     Indication: PRODUCT USED FOR UNKNOWN INDICATION
     Dosage: UNK
     Route: 065
  16. THYMOSIN ALPHA 1 [Concomitant]
     Dosage: UNK

REACTIONS (2)
  - ASPERGILLOSIS [None]
  - BACTERIAL INFECTION [None]
